FAERS Safety Report 6557363-0 (Version None)
Quarter: 2010Q1

REPORT INFORMATION
  Report Type: 
  Country: None (occurrence: None)
  Receive Date: 20100129
  Receipt Date: 20100118
  Transmission Date: 20100710
  Serious: Yes (Other)
  Sender: FDA-Public Use
  Company Number: PHHY2010CA02718

PATIENT
  Sex: Female

DRUGS (7)
  1. ACLASTA [Suspect]
     Indication: OSTEOPOROSIS POSTMENOPAUSAL
     Dosage: 5 MG, UNK
     Dates: start: 20090306
  2. LIPITOR [Concomitant]
  3. ASPIRIN [Concomitant]
  4. SYNTHROID [Concomitant]
  5. VENTOLIN [Concomitant]
  6. ADVAIR [Concomitant]
  7. SPIRIVA [Concomitant]

REACTIONS (4)
  - CATARACT [None]
  - IMPAIRED DRIVING ABILITY [None]
  - NEPHROLITHIASIS [None]
  - RENAL CYST [None]
